FAERS Safety Report 4421616-2 (Version None)
Quarter: 2004Q3

REPORT INFORMATION
  Report Type: 
  Country: None (occurrence: None)
  Receive Date: 20040806
  Receipt Date: 20040716
  Transmission Date: 20050211
  Serious: Yes (Other)
  Sender: FDA-Public Use
  Company Number: EWC040739988

PATIENT
  Age: 65 Year
  Sex: Female

DRUGS (1)
  1. XIGRIS [Suspect]

REACTIONS (4)
  - BLOOD LACTIC ACID INCREASED [None]
  - GENERAL PHYSICAL HEALTH DETERIORATION [None]
  - PYREXIA [None]
  - THROMBOCYTOPENIA [None]
